FAERS Safety Report 10620181 (Version 1)
Quarter: 2014Q4

REPORT INFORMATION
  Report Type: Spontaneous
  Country: JP (occurrence: None)
  Receive Date: 20141128
  Receipt Date: 20141128
  Transmission Date: 20150529
  Serious: Yes (Hospitalization)
  Sender: FDA-Public Use
  Company Number: JP-RRD-14-00126

PATIENT
  Age: 30 Year
  Sex: Male

DRUGS (2)
  1. ACTINOMYCIN D [Suspect]
     Active Substance: DACTINOMYCIN
     Indication: NEPHROBLASTOMA
  2. VINCRISTINE (VINCRISTINE) (UNKNOWN) (VINCRISTINE) [Concomitant]
     Active Substance: VINCRISTINE

REACTIONS (6)
  - Pyrexia [None]
  - Gallbladder disorder [None]
  - Cholelithiasis [None]
  - Hepatic vein stenosis [None]
  - Venoocclusive liver disease [None]
  - Disseminated intravascular coagulation [None]
